FAERS Safety Report 18773199 (Version 1)
Quarter: 2021Q1

REPORT INFORMATION
  Report Type: Spontaneous
  Country: US (occurrence: US)
  Receive Date: 20210121
  Receipt Date: 20210121
  Transmission Date: 20210419
  Serious: Yes (Hospitalization)
  Sender: FDA-Public Use
  Company Number: None

PATIENT
  Age: 50 Year
  Sex: Male

DRUGS (1)
  1. VITAMIN D3 [Suspect]
     Active Substance: CHOLECALCIFEROL
     Indication: VITAMIN D DEFICIENCY
     Dosage: ?          OTHER DOSE:50,000 IU;?
     Route: 048
     Dates: start: 20191213, end: 202012

REACTIONS (13)
  - Coronavirus test positive [None]
  - Dyspnoea [None]
  - Disease progression [None]
  - Lung opacity [None]
  - Recurrent cancer [None]
  - Headache [None]
  - Autologous bone marrow transplantation therapy [None]
  - Myalgia [None]
  - Respiratory rate increased [None]
  - Pneumonia [None]
  - Decreased appetite [None]
  - Fatigue [None]
  - Pyrexia [None]

NARRATIVE: CASE EVENT DATE: 20210115
